FAERS Safety Report 6581745-4 (Version None)
Quarter: 2010Q1

REPORT INFORMATION
  Report Type: 
  Country: None (occurrence: None)
  Receive Date: 20100215
  Receipt Date: 20100203
  Transmission Date: 20100710
  Serious: Yes (Other)
  Sender: FDA-Public Use
  Company Number: PHHY2010CA06445

PATIENT
  Age: 70 Year
  Sex: Female

DRUGS (2)
  1. DIOVAN [Suspect]
     Indication: HYPERTENSION
     Dosage: UNK
  2. LOPRESSOR [Concomitant]
     Indication: CARDIAC DISORDER
     Dosage: 50 MG, BID

REACTIONS (6)
  - ABASIA [None]
  - BALANCE DISORDER [None]
  - CONFUSIONAL STATE [None]
  - COORDINATION ABNORMAL [None]
  - DIZZINESS [None]
  - HEADACHE [None]
